FAERS Safety Report 4567106-8 (Version None)
Quarter: 2005Q1

REPORT INFORMATION
  Report Type: 
  Country: None (occurrence: None)
  Receive Date: 20050126
  Receipt Date: 20050104
  Transmission Date: 20050727
  Serious: Yes (Hospitalization)
  Sender: FDA-Public Use
  Company Number: CEL-2004-02125-ROC

PATIENT
  Age: 52 Year
  Sex: Male

DRUGS (16)
  1. METOLAZONE [Suspect]
     Indication: HYPERTENSION
     Dates: start: 20041107, end: 20041107
  2. METOLAZONE [Suspect]
     Indication: OEDEMA
     Dates: start: 20041107, end: 20041107
  3. MICARDIS [Suspect]
     Dates: end: 20041108
  4. COZAAR [Suspect]
     Dates: end: 20041108
  5. LASIX [Suspect]
     Indication: HYPERTENSION
     Dates: start: 20041101, end: 20041108
  6. LASIX [Suspect]
     Indication: OEDEMA
     Dates: start: 20041101, end: 20041108
  7. METOPROLOL TARTRATE [Concomitant]
  8. GLIPIZIDE [Concomitant]
     Indication: HYPERTENSION
  9. INSULIN, REGULAR (INSULIN) [Concomitant]
  10. PAROXETINE HCL [Concomitant]
  11. ASPIRIN [Concomitant]
  12. GEMFINROZIL (GEMFIBROZIL) [Concomitant]
  13. NPH INSULIN [Concomitant]
  14. ALLOPURINOL [Concomitant]
  15. CRESTOR [Concomitant]
  16. VERAPAMIL [Suspect]
     Indication: HYPERTENSION

REACTIONS (9)
  - ASTHENIA [None]
  - BLOOD GLUCOSE INCREASED [None]
  - CARDIAC FAILURE CONGESTIVE [None]
  - DEHYDRATION [None]
  - HYPOTENSION [None]
  - MYOCARDIAL INFARCTION [None]
  - REFUSAL OF TREATMENT BY PATIENT [None]
  - RENAL FAILURE ACUTE [None]
  - SYNCOPE [None]
